FAERS Safety Report 23904484 (Version 3)
Quarter: 2024Q3

REPORT INFORMATION
  Report Type: Report from Study
  Country: GB (occurrence: GB)
  Receive Date: 20240527
  Receipt Date: 20240704
  Transmission Date: 20241016
  Serious: Yes (Other)
  Sender: SANDOZ
  Company Number: GB-SANDOZ-SDZ2024GB051315

PATIENT
  Age: 35 Year
  Sex: Male

DRUGS (1)
  1. HYRIMOZ [Suspect]
     Active Substance: ADALIMUMAB-ADAZ
     Indication: Spinal osteoarthritis
     Dosage: 40 MG, Q2W (EOW)
     Route: 058

REACTIONS (7)
  - Rheumatoid arthritis [Unknown]
  - Spinal osteoarthritis [Unknown]
  - Injection site pain [Unknown]
  - Product dose omission issue [Unknown]
  - Product dose omission issue [Unknown]
  - Inappropriate schedule of product administration [Unknown]
  - Wrong technique in device usage process [Unknown]

NARRATIVE: CASE EVENT DATE: 20240514
